FAERS Safety Report 5715339-7 (Version None)
Quarter: 2008Q2

REPORT INFORMATION
  Report Type: 
  Country: None (occurrence: None)
  Receive Date: 20080423
  Receipt Date: 20080411
  Transmission Date: 20081010
  Serious: Yes (Other)
  Sender: FDA-Public Use
  Company Number: CA-PFIZER INC-2008032295

PATIENT
  Age: 54 Year
  Sex: Male

DRUGS (8)
  1. CHAMPIX [Suspect]
     Route: 048
  2. CRESTOR [Concomitant]
  3. ACETYLSALICYLIC ACID SRT [Concomitant]
  4. PANTOPRAZOLE SODIUM [Concomitant]
  5. SPIRIVA [Concomitant]
  6. TOPAMAX [Concomitant]
  7. VITAMIN D [Concomitant]
  8. ZOPICLONE [Concomitant]

REACTIONS (4)
  - FALL [None]
  - HEMIPARESIS [None]
  - HEMIPLEGIA [None]
  - VERTIGO [None]
